FAERS Safety Report 24896272 (Version 1)
Quarter: 2025Q1

REPORT INFORMATION
  Report Type: Spontaneous
  Country: CA (occurrence: CA)
  Receive Date: 20250128
  Receipt Date: 20250128
  Transmission Date: 20250409
  Serious: Yes (Other)
  Sender: PERRIGO
  Company Number: CA-MLMSERVICE-20250114-PI348351-00029-1

PATIENT
  Age: 39 Year
  Sex: Female

DRUGS (3)
  1. ACETAMINOPHEN [Suspect]
     Active Substance: ACETAMINOPHEN
     Indication: Nasal discomfort
     Dosage: 10 UNK, QD
     Route: 045
     Dates: start: 202209
  2. ACETAMINOPHEN [Suspect]
     Active Substance: ACETAMINOPHEN
     Indication: Oropharyngeal discomfort
     Dosage: REDUCE USAGE TO 1-4 TABLETS, QD
     Route: 045
     Dates: end: 202302
  3. PERCOCET [Suspect]
     Active Substance: ACETAMINOPHEN\OXYCODONE HYDROCHLORIDE
     Indication: Product used for unknown indication
     Route: 045
     Dates: start: 2010

REACTIONS (14)
  - Nasal necrosis [Unknown]
  - Nasal crusting [Unknown]
  - Rhinalgia [Unknown]
  - Nasal congestion [Unknown]
  - Anosmia [Unknown]
  - Rhinorrhoea [Unknown]
  - Odynophagia [Unknown]
  - Nasal septum perforation [Unknown]
  - Sinus pain [Unknown]
  - Vocal cord erythema [Unknown]
  - Vocal cord inflammation [Unknown]
  - Throat irritation [Unknown]
  - Drug abuse [Unknown]
  - Intentional product use issue [Unknown]
